FAERS Safety Report 25563755 (Version 1)
Quarter: 2025Q3

REPORT INFORMATION
  Report Type: Other
  Country: NZ (occurrence: NZ)
  Receive Date: 20250716
  Receipt Date: 20250716
  Transmission Date: 20251021
  Serious: Yes (Other)
  Sender: DOUGLAS PHARMACEUTICALS
  Company Number: NZ-DOUGLAS PHARMACEUTICALS US-2025DGL00293

PATIENT
  Age: 33 Year
  Sex: Male

DRUGS (1)
  1. CLOZAPINE [Suspect]
     Active Substance: CLOZAPINE

REACTIONS (4)
  - Myocardial ischaemia [Unknown]
  - Obesity [Unknown]
  - Hypercholesterolaemia [Unknown]
  - Impaired fasting glucose [Unknown]
